FAERS Safety Report 5237576-0 (Version None)
Quarter: 2007Q1

REPORT INFORMATION
  Report Type: 
  Country: None (occurrence: None)
  Receive Date: 20070213
  Receipt Date: 20070212
  Transmission Date: 20070707
  Serious: Yes (Hospitalization)
  Sender: FDA-Public Use
  Company Number: NZ-MERCK-0702NZL00004

PATIENT
  Age: 86 Year
  Sex: Female

DRUGS (2)
  1. FOSAMAX [Suspect]
     Indication: OSTEOPOROSIS
     Route: 048
     Dates: start: 20030101, end: 20030601
  2. FOSAMAX [Suspect]
     Route: 048
     Dates: start: 20070101, end: 20070101

REACTIONS (2)
  - ADVERSE EVENT [None]
  - CHEST PAIN [None]
